FAERS Safety Report 6263356-3 (Version None)
Quarter: 2009Q3

REPORT INFORMATION
  Report Type: 
  Country: None (occurrence: None)
  Receive Date: 20090710
  Receipt Date: 20080728
  Transmission Date: 20100115
  Serious: No
  Sender: FDA-Public Use
  Company Number: A0735846A

PATIENT
  Age: 49 Year
  Sex: Female
  Weight: 72.3 kg

DRUGS (6)
  1. FLOVENT [Suspect]
     Route: 055
     Dates: start: 20080101, end: 20080101
  2. CELEXA [Concomitant]
  3. PREVACID [Concomitant]
  4. QUESTRAN [Concomitant]
  5. TOPROL-XL [Concomitant]
  6. IMITREX [Concomitant]

REACTIONS (7)
  - BLOOD IMMUNOGLOBULIN A DECREASED [None]
  - DYSPHAGIA [None]
  - FEELING COLD [None]
  - HYPERHIDROSIS [None]
  - NEUTROPHIL COUNT INCREASED [None]
  - THROAT LESION [None]
  - WHITE BLOOD CELL COUNT INCREASED [None]
